FAERS Safety Report 16565621 (Version 1)
Quarter: 2019Q3

REPORT INFORMATION
  Report Type: Spontaneous
  Country: US (occurrence: US)
  Receive Date: 20190712
  Receipt Date: 20190712
  Transmission Date: 20191004
  Serious: Yes (Hospitalization)
  Sender: FDA-Public Use
  Company Number: US-TEVA-2019-US-1075768

PATIENT
  Sex: Male

DRUGS (30)
  1. AUSTEDO [Suspect]
     Active Substance: DEUTETRABENAZINE
     Dosage: 18 MILLIGRAM DAILY;
     Dates: start: 2019
  2. INGREZZA [Suspect]
     Active Substance: VALBENAZINE
     Dates: start: 2019
  3. XENAZINE [Suspect]
     Active Substance: TETRABENAZINE
     Route: 065
     Dates: start: 2019
  4. LUVOX [Concomitant]
     Active Substance: FLUVOXAMINE MALEATE
     Route: 065
     Dates: start: 2018
  5. KLONOPIN [Concomitant]
     Active Substance: CLONAZEPAM
     Dosage: 8 MILLIGRAM DAILY;
     Dates: start: 2018
  6. LUVOX [Concomitant]
     Active Substance: FLUVOXAMINE MALEATE
     Dosage: 3 AT PM (POST MERIDIEM)
     Dates: start: 2013, end: 2017
  7. AUSTEDO [Suspect]
     Active Substance: DEUTETRABENAZINE
     Dosage: 24 MILLIGRAM DAILY;
     Dates: start: 20190606
  8. PROPRANOLOL [Suspect]
     Active Substance: PROPRANOLOL HYDROCHLORIDE
     Dates: start: 2013, end: 2017
  9. PROPRANOLOL [Suspect]
     Active Substance: PROPRANOLOL HYDROCHLORIDE
     Route: 065
     Dates: start: 2019
  10. INGREZZA [Suspect]
     Active Substance: VALBENAZINE
     Dates: start: 2019
  11. TRILEPTAL [Concomitant]
     Active Substance: OXCARBAZEPINE
     Dosage: 1 AM (ANTE MERIDIEM), 3 PM (POST MERIDIEM)
     Dates: start: 2013, end: 2017
  12. AMANTADINE. [Concomitant]
     Active Substance: AMANTADINE HYDROCHLORIDE
     Dosage: 300 UNKNOWN DAILY;
     Dates: start: 2013, end: 2017
  13. AMANTADINE. [Concomitant]
     Active Substance: AMANTADINE HYDROCHLORIDE
     Route: 065
     Dates: start: 2018
  14. ROZEREM [Concomitant]
     Active Substance: RAMELTEON
     Dates: start: 2018
  15. SEROQUEL XR [Concomitant]
     Active Substance: QUETIAPINE FUMARATE
     Dosage: 1200 MILLIGRAM DAILY; ONE DOSE AT PM (POST MERIDIEM)
     Dates: start: 2010, end: 2013
  16. ADDERALL [Concomitant]
     Active Substance: AMPHETAMINE ASPARTATE\AMPHETAMINE SULFATE\DEXTROAMPHETAMINE SACCHARATE\DEXTROAMPHETAMINE SULFATE
     Route: 065
     Dates: start: 2019
  17. TRILEPTAL [Concomitant]
     Active Substance: OXCARBAZEPINE
     Route: 065
     Dates: start: 2018
  18. NEURONTIN [Concomitant]
     Active Substance: GABAPENTIN
     Dosage: 1800 UNKNOWN DAILY;
     Dates: start: 2013, end: 2017
  19. KLONOPIN [Concomitant]
     Active Substance: CLONAZEPAM
     Dosage: 3 MILLIGRAM DAILY;
     Dates: start: 2013, end: 2017
  20. AUSTEDO [Suspect]
     Active Substance: DEUTETRABENAZINE
     Dosage: 36 MILLIGRAM DAILY;
     Dates: start: 20190620
  21. PROPRANOLOL [Suspect]
     Active Substance: PROPRANOLOL HYDROCHLORIDE
     Dosage: 320 MILLIGRAM DAILY;
     Dates: start: 2018
  22. TRILEPTAL [Concomitant]
     Active Substance: OXCARBAZEPINE
     Route: 065
     Dates: start: 2019
  23. AMANTADINE. [Concomitant]
     Active Substance: AMANTADINE HYDROCHLORIDE
     Route: 065
     Dates: start: 2019
  24. ROZEREM [Concomitant]
     Active Substance: RAMELTEON
     Route: 065
     Dates: start: 2019
  25. AUSTEDO [Suspect]
     Active Substance: DEUTETRABENAZINE
     Dosage: INCREASING BY 6MG BIWEEKLY
     Dates: start: 2019
  26. XENAZINE [Suspect]
     Active Substance: TETRABENAZINE
     Dates: start: 2018
  27. ADDERALL [Concomitant]
     Active Substance: AMPHETAMINE ASPARTATE\AMPHETAMINE SULFATE\DEXTROAMPHETAMINE SACCHARATE\DEXTROAMPHETAMINE SULFATE
     Dosage: 60 UNKNOWN DAILY;
     Dates: start: 2013, end: 2017
  28. ADDERALL [Concomitant]
     Active Substance: AMPHETAMINE ASPARTATE\AMPHETAMINE SULFATE\DEXTROAMPHETAMINE SACCHARATE\DEXTROAMPHETAMINE SULFATE
     Dosage: 90 UNKNOWN DAILY;
     Dates: start: 2018
  29. SEROQUEL XR [Concomitant]
     Active Substance: QUETIAPINE FUMARATE
     Dates: start: 2018
  30. NEURONTIN [Concomitant]
     Active Substance: GABAPENTIN
     Route: 065
     Dates: start: 2018

REACTIONS (14)
  - Tardive dyskinesia [Unknown]
  - Essential tremor [Unknown]
  - Skin discolouration [Unknown]
  - Tongue thrust [Unknown]
  - Urticaria [Unknown]
  - Rash [Unknown]
  - Depressed mood [Unknown]
  - Drug hypersensitivity [Unknown]
  - Hypersensitivity [Unknown]
  - Restlessness [Unknown]
  - Insomnia [Unknown]
  - Blood pressure abnormal [Unknown]
  - Dysgraphia [Unknown]
  - Skin disorder [Unknown]
